FAERS Safety Report 9949523 (Version 2)
Quarter: 2014Q1

REPORT INFORMATION
  Report Type: Spontaneous
  Country: ZA (occurrence: ZA)
  Receive Date: 20140304
  Receipt Date: 20140304
  Transmission Date: 20141002
  Serious: Yes (Other)
  Sender: FDA-Public Use
  Company Number: ZA-ASTELLAS-2014EU001333

PATIENT
  Age: 28 Year
  Sex: Female
  Weight: 73.4 kg

DRUGS (11)
  1. ADVAGRAF [Suspect]
     Indication: HEART TRANSPLANT
     Dosage: 4 MG, UID/QD
     Route: 048
     Dates: start: 20140127, end: 20140217
  2. ADVAGRAF [Suspect]
     Dosage: 6 MG, UNKNOWN/D
     Route: 048
     Dates: start: 20140211
  3. ADVAGRAF [Suspect]
     Dosage: 8 MG, UNKNOWN/D
     Route: 048
     Dates: start: 20140212
  4. PROGRAF [Suspect]
     Indication: HEART TRANSPLANT
     Dosage: 2 MG, BID
     Route: 048
     Dates: start: 20050310
  5. PROGRAF [Suspect]
     Dosage: 3 MG, BID
     Route: 065
  6. PROGRAF [Suspect]
     Dosage: 4 MG, BID
     Route: 048
  7. CELLCEPT                           /01275102/ [Concomitant]
  8. PREDNISONE [Concomitant]
     Indication: HEART TRANSPLANT
     Dosage: UNK
     Route: 048
  9. LIPITOR [Concomitant]
     Indication: DYSLIPIDAEMIA
     Dosage: 5 MG, UID/QD
     Route: 065
  10. CLEXANE [Concomitant]
     Indication: DIASTOLIC DYSFUNCTION
     Dosage: 40 MG, UNKNOWN/D
     Route: 058
     Dates: start: 20131205
  11. LASIX                              /00032601/ [Concomitant]
     Indication: DIASTOLIC DYSFUNCTION
     Dosage: 40 MG, PRN
     Route: 065

REACTIONS (5)
  - Off label use [Unknown]
  - Exposure during pregnancy [Unknown]
  - Heart transplant rejection [Unknown]
  - Immunosuppressant drug level decreased [Unknown]
  - Premature delivery [Unknown]
